FAERS Safety Report 7131434-2 (Version None)
Quarter: 2010Q4

REPORT INFORMATION
  Report Type: 
  Country: None (occurrence: None)
  Receive Date: 20101201
  Receipt Date: 20101119
  Transmission Date: 20110411
  Serious: Yes (Hospitalization)
  Sender: FDA-Public Use
  Company Number: PHHY2010US79651

PATIENT
  Sex: Female

DRUGS (1)
  1. FEMARA [Suspect]
     Indication: BRAIN NEOPLASM MALIGNANT
     Dosage: 2.5 MG DAILY
     Route: 048
     Dates: start: 20100611

REACTIONS (3)
  - ASTHENIA [None]
  - FALL [None]
  - URINARY TRACT INFECTION [None]
